FAERS Safety Report 4385111-1 (Version None)
Quarter: 2004Q2

REPORT INFORMATION
  Report Type: 
  Country: None (occurrence: None)
  Receive Date: 20040621
  Receipt Date: 20040607
  Transmission Date: 20050107
  Serious: Yes (Death)
  Sender: FDA-Public Use
  Company Number: 2004-BP-03768RP

PATIENT
  Age: 69 Year
  Sex: Male

DRUGS (1)
  1. MICARDIS [Suspect]
     Indication: HYPERTENSION
     Dosage: 40 MG, 1 TAB OD; PO
     Route: 048
     Dates: start: 20030827

REACTIONS (1)
  - HAEMORRHAGIC STROKE [None]
